FAERS Safety Report 24369782 (Version 1)
Quarter: 2024Q3

REPORT INFORMATION
  Report Type: Spontaneous
  Country: CA (occurrence: CA)
  Receive Date: 20240927
  Receipt Date: 20240927
  Transmission Date: 20241017
  Serious: Yes (Disabling, Other)
  Sender: ACCORD
  Company Number: CA-Accord-448224

PATIENT
  Age: 7 Year
  Sex: Male

DRUGS (4)
  1. METHOTREXATE [Suspect]
     Active Substance: METHOTREXATE
     Indication: B-cell type acute leukaemia
     Dosage: INTERIM MAINTENANCE I(IV MTX ESCALATING DOSE ON HIGH DOSE ON DAY 1, 11, 21, 31, 41 OR 1, 15, 29, 43)
     Route: 042
  2. METHOTREXATE [Suspect]
     Active Substance: METHOTREXATE
     Indication: B-cell type acute leukaemia
     Dosage: INTERIM MAINTENANCE II (IV MTX ON DAYS 1, 11, 21, 31, 41)
     Route: 042
  3. METHOTREXATE [Suspect]
     Active Substance: METHOTREXATE
     Indication: B-cell type acute leukaemia
     Dosage: INDUCTION (INTRATHECAL (IT) METHOTREXATE (MTX) ON DAY 8, 29);
     Route: 037
  4. METHOTREXATE [Suspect]
     Active Substance: METHOTREXATE
     Indication: B-cell type acute leukaemia
     Dosage: MAINTENANCE (ORAL MTX WEEKLY (DAYS 1-78)
     Route: 048

REACTIONS (3)
  - Intellectual disability [Unknown]
  - Lennox-Gastaut syndrome [Unknown]
  - Confusional state [Unknown]
